FAERS Safety Report 8151998-X (Version None)
Quarter: 2012Q1

REPORT INFORMATION
  Report Type: 
  Country: None (occurrence: None)
  Receive Date: 20120221
  Receipt Date: 20120216
  Transmission Date: 20120608
  Serious: No
  Sender: FDA-Public Use
  Company Number: US-PFIZER INC-2012043357

PATIENT
  Sex: Female
  Weight: 83.9 kg

DRUGS (1)
  1. DEPO-ESTRADIOL [Suspect]
     Indication: MENOPAUSAL SYMPTOMS
     Dosage: 1 ML, MONTHLY
     Route: 030

REACTIONS (1)
  - DRUG INEFFECTIVE [None]
